FAERS Safety Report 18123876 (Version 1)
Quarter: 2020Q3

REPORT INFORMATION
  Report Type: Spontaneous
  Country: US (occurrence: US)
  Receive Date: 20200807
  Receipt Date: 20200807
  Transmission Date: 20201103
  Serious: Yes (Other)
  Sender: FDA-Public Use
  Company Number: US-MACLEODS PHARMACEUTICALS US LTD-MAC2020027556

PATIENT

DRUGS (26)
  1. QUETIAPINE. [Suspect]
     Active Substance: QUETIAPINE
     Dosage: 25 MG (4 DOSES TOTAL WITH 2 DOSES GIVEN ON HD 66) PRN
     Route: 065
  2. DONEPEZIL. [Suspect]
     Active Substance: DONEPEZIL
     Dosage: 15 MILLIGRAM, QD, BEDTIME DOSE WAS TITRATED TO 10 MG FOR A TOTAL OF 15 MG DAILY
     Route: 065
  3. VITAMIN D SUPPLEMENT [Concomitant]
     Active Substance: VITAMIN D NOS
     Indication: NUTRITIONAL CONDITION ABNORMAL
     Dosage: UNK UNK, QD
     Route: 065
  4. QUETIAPINE. [Suspect]
     Active Substance: QUETIAPINE
     Dosage: 50 MILLIGRAM, TID
     Route: 065
  5. OLANZAPINE. [Concomitant]
     Active Substance: OLANZAPINE
     Indication: PRODUCT USED FOR UNKNOWN INDICATION
     Dosage: 10 MILLIGRAM, PRN
     Route: 065
  6. QUETIAPINE. [Suspect]
     Active Substance: QUETIAPINE
     Indication: AFFECTIVE DISORDER
     Dosage: 100 MILLIGRAM (IN MORNING)
     Route: 065
  7. QUETIAPINE. [Suspect]
     Active Substance: QUETIAPINE
     Dosage: 200 MILLIGRAM (AT NOON)
     Route: 065
  8. DIVALPROEX SODIUM. [Concomitant]
     Active Substance: DIVALPROEX SODIUM
     Indication: AFFECTIVE DISORDER
     Dosage: 500 MILLIGRAM, BID
     Route: 065
  9. QUETIAPINE. [Suspect]
     Active Substance: QUETIAPINE
     Dosage: 300 MILLIGRAM (AT BEDTIME)
     Route: 065
  10. QUETIAPINE. [Suspect]
     Active Substance: QUETIAPINE
     Dosage: 50 MILLIGRAM, BID
     Route: 065
  11. QUETIAPINE. [Suspect]
     Active Substance: QUETIAPINE
     Dosage: 100 MILLIGRAM, PRN (1 PRN DOSE)
     Route: 065
  12. METOPROLOL. [Concomitant]
     Active Substance: METOPROLOL
     Indication: TACHYCARDIA
     Dosage: 25 MILLIGRAM, QD
     Route: 065
  13. QUETIAPINE. [Suspect]
     Active Substance: QUETIAPINE
     Dosage: 25 MG (5 DOSES TOTAL WITH 2 GIVEN ON HD 76) PRN
     Route: 065
  14. MONTELUKAST [Concomitant]
     Active Substance: MONTELUKAST SODIUM
     Indication: ASTHMA
     Dosage: 10 MILLIGRAM, QD
     Route: 065
  15. POLYETHYLENE GLYCOL?3350 [Concomitant]
     Active Substance: POLYETHYLENE GLYCOL 3350
     Indication: CONSTIPATION
     Dosage: 17 GRAM, QD
     Route: 065
  16. QUETIAPINE. [Suspect]
     Active Substance: QUETIAPINE
     Dosage: 25 MILLIGRAM, PRN (SINGLE DOSE OF ORAL QUETIAPINE 25 MG)
     Route: 048
  17. DONEPEZIL. [Suspect]
     Active Substance: DONEPEZIL
     Indication: COGNITIVE REHABILITATION
     Dosage: 5 MILLIGRAM, QD (AT BEDTIME)
     Route: 065
  18. DONEPEZIL. [Suspect]
     Active Substance: DONEPEZIL
     Dosage: 5 MILLIGRAM, BID
     Route: 065
  19. DIVALPROEX SODIUM. [Concomitant]
     Active Substance: DIVALPROEX SODIUM
     Indication: SEIZURE
  20. CALCIUM [Concomitant]
     Active Substance: CALCIUM
     Indication: NUTRITIONAL CONDITION ABNORMAL
     Dosage: UNK UNK, QD
     Route: 065
  21. QUETIAPINE. [Suspect]
     Active Substance: QUETIAPINE
     Dosage: 50 MILLIGRAM, TID
     Route: 065
  22. DONEPEZIL. [Suspect]
     Active Substance: DONEPEZIL
     Dosage: 10 MILLIGRAM, BID
     Route: 065
  23. DONEPEZIL. [Suspect]
     Active Substance: DONEPEZIL
     Dosage: 10 MILLIGRAM, QD (IN THE MORNING)
     Route: 065
  24. PANTOPRAZOLE 40 MG [Suspect]
     Active Substance: PANTOPRAZOLE SODIUM
     Indication: PRODUCT USED FOR UNKNOWN INDICATION
     Dosage: 40 MILLIGRAM, QD (IN THE MORNING)
     Route: 065
  25. CEPHALEXIN. [Concomitant]
     Active Substance: CEPHALEXIN
     Indication: CELLULITIS
     Dosage: 500 MILLIGRAM, QID
     Route: 065
  26. DIPHENHYDRAMINE. [Concomitant]
     Active Substance: DIPHENHYDRAMINE
     Indication: AGITATION
     Dosage: 50 MILLIGRAM
     Route: 030

REACTIONS (3)
  - Sedation [Unknown]
  - Electrocardiogram QT prolonged [Recovered/Resolved]
  - Product use in unapproved indication [Unknown]
